FAERS Safety Report 9006180 (Version 1)
Quarter: 2013Q1

REPORT INFORMATION
  Report Type: Spontaneous
  Country: US (occurrence: US)
  Receive Date: 20130110
  Receipt Date: 20130110
  Transmission Date: 20140127
  Serious: Yes (Other)
  Sender: FDA-Public Use
  Company Number: US-009507513-0909USA03187

PATIENT
  Age: 61 Year
  Sex: Female
  Weight: 72.58 kg

DRUGS (3)
  1. SINGULAIR [Suspect]
     Indication: RHINITIS
     Dosage: 10 MG, QD
     Route: 048
     Dates: start: 20081101, end: 20081231
  2. ESTRACE [Concomitant]
  3. SYNTHROID [Concomitant]

REACTIONS (4)
  - Mood altered [Unknown]
  - Anxiety [Unknown]
  - Depression [Unknown]
  - Nervousness [Unknown]
